FAERS Safety Report 9505520 (Version 1)
Quarter: 2013Q1

REPORT INFORMATION
  Report Type: Spontaneous
  Country: US (occurrence: None)
  Receive Date: 20130220
  Receipt Date: 20130220
  Transmission Date: 20140127
  Serious: No
  Sender: FDA-Public Use
  Company Number: 1000040387

PATIENT
  Age: 27 Year
  Sex: Female

DRUGS (2)
  1. VIIBRYD (VILAZODONE HYDROCHLORIDE) [Suspect]
     Route: 048
     Dates: start: 20120924
  2. RETIN-A (TRETINOIN) (TRETINOIN) [Concomitant]

REACTIONS (3)
  - Acne [None]
  - Agitation [None]
  - Irritability [None]
